FAERS Safety Report 8504272-3 (Version None)
Quarter: 2012Q3

REPORT INFORMATION
  Report Type: 
  Country: None (occurrence: None)
  Receive Date: 20120711
  Receipt Date: 20120709
  Transmission Date: 20120928
  Serious: Yes (Congenital Anomaly)
  Sender: FDA-Public Use
  Company Number: GXKR2012DE002172

PATIENT

DRUGS (5)
  1. AMOXICILLIN [Concomitant]
     Route: 064
  2. FOLIC ACID [Concomitant]
     Dosage: MATERNAL DOSE: 0.8 [MG/D ]
     Route: 064
  3. FLUOXETINE [Suspect]
     Dosage: MATERNAL DOSE: 40 MG/DAY
     Route: 064
  4. ACETAMINOPHEN [Concomitant]
     Route: 064
  5. CIPROFLOXACIN [Concomitant]
     Dosage: MATERNAL DOSE: 250 [MG/D ] (ONLY 3 DAYS TAKEN BETWEEN WEEK 8 AND 9)
     Route: 064

REACTIONS (4)
  - SPINA BIFIDA [None]
  - FOETAL EXPOSURE DURING PREGNANCY [None]
  - HYDROCEPHALUS [None]
  - ARNOLD-CHIARI MALFORMATION [None]
